FAERS Safety Report 7455348-3 (Version None)
Quarter: 2011Q2

REPORT INFORMATION
  Report Type: 
  Country: None (occurrence: None)
  Receive Date: 20110503
  Receipt Date: 20110428
  Transmission Date: 20111010
  Serious: Yes (Life-Threatening, Hospitalization, Other)
  Sender: FDA-Public Use
  Company Number: ES-ASTRAZENECA-2011SE24651

PATIENT
  Age: 79 Year
  Sex: Male

DRUGS (6)
  1. ACETAMINOPHEN [Concomitant]
     Route: 065
     Dates: start: 20100319, end: 20100324
  2. ENOXAPARIN SODIUM [Concomitant]
     Indication: DIABETIC FOOT
     Dosage: 40 MG (4000 U:I:) INJECTABLE SOLUTION IN PRECHARGED SYRINGE, 2
     Route: 058
     Dates: start: 20100319, end: 20100324
  3. AUGMENTIN XR [Concomitant]
     Indication: SKIN INFECTION
     Dosage: 1000/62.5 MG PROLONGED RELEASE TABLETS, 28 TABLETS
     Route: 048
     Dates: start: 20100319, end: 20100324
  4. ATACAND [Suspect]
     Indication: HYPERTENSION
     Route: 048
     Dates: start: 20061001, end: 20100324
  5. FUROSEMIDE [Interacting]
     Indication: RENAL FAILURE CHRONIC
     Route: 048
     Dates: start: 20080501
  6. VOLTAREN [Concomitant]
     Indication: DIABETIC FOOT
     Dosage: 75 MG/AMPOULE, 6 AMPOULES 3 ML (SODIUM DICLOFENNACO)
     Route: 030
     Dates: start: 20100321, end: 20100321

REACTIONS (2)
  - RENAL FAILURE ACUTE [None]
  - DRUG INTERACTION [None]
